FAERS Safety Report 9827719 (Version 1)
Quarter: 2014Q1

REPORT INFORMATION
  Report Type: Spontaneous
  Country: BR (occurrence: BR)
  Receive Date: 20140117
  Receipt Date: 20140117
  Transmission Date: 20141002
  Serious: Yes (Hospitalization)
  Sender: FDA-Public Use
  Company Number: PHHY2014BR003967

PATIENT
  Age: 3 Year
  Sex: Male

DRUGS (1)
  1. GILENYA [Suspect]
     Dosage: 4 DF, QD
     Route: 048

REACTIONS (3)
  - Accidental exposure to product by child [Recovered/Resolved]
  - Heart rate decreased [Recovered/Resolved]
  - Accidental overdose [Unknown]
